FAERS Safety Report 7381699-7 (Version None)
Quarter: 2011Q1

REPORT INFORMATION
  Report Type: 
  Country: None (occurrence: None)
  Receive Date: 20110329
  Receipt Date: 20101020
  Transmission Date: 20110831
  Serious: Yes (Other)
  Sender: FDA-Public Use
  Company Number: US-BAYER-201014048NA

PATIENT
  Sex: Female
  Weight: 113.64 kg

DRUGS (7)
  1. ASCORBIC ACID [Concomitant]
     Dosage: 200 MG, QD
     Route: 048
     Dates: start: 20080301
  2. PROMETHAZINE [Concomitant]
     Indication: NAUSEA
     Dosage: 25 MG, UNK
     Route: 048
     Dates: start: 20080201
  3. ORAL CONTRACEPTIVE NOS [Concomitant]
     Indication: PRODUCT USED FOR UNKNOWN INDICATION
     Route: 065
  4. PROMETHAZINE [Concomitant]
     Indication: VOMITING
  5. YASMIN [Suspect]
     Indication: CONTRACEPTION
     Route: 048
     Dates: start: 20080118, end: 20080713
  6. CIPRO [Concomitant]
     Indication: PRODUCT USED FOR UNKNOWN INDICATION
     Route: 048
  7. OCELLA [Concomitant]
     Dates: start: 20080713, end: 20081201

REACTIONS (6)
  - NAUSEA [None]
  - CHOLESTEROSIS [None]
  - ABDOMINAL PAIN UPPER [None]
  - VOMITING [None]
  - CHOLELITHIASIS [None]
  - CHOLECYSTITIS CHRONIC [None]
